FAERS Safety Report 11946353 (Version 1)
Quarter: 2016Q1

REPORT INFORMATION
  Report Type: Spontaneous
  Country: US (occurrence: US)
  Receive Date: 20160125
  Receipt Date: 20160125
  Transmission Date: 20160526
  Serious: No
  Sender: FDA-Public Use
  Company Number: US-JNJFOC-20151225876

PATIENT
  Sex: Female
  Weight: 63.05 kg

DRUGS (3)
  1. WOMENS ROGAINE UNSCENTED [Suspect]
     Active Substance: MINOXIDIL
     Indication: ALOPECIA
     Dosage: LESS THAN A HALF CAP
     Route: 061
     Dates: start: 20151228, end: 20151229
  2. WOMENS ROGAINE UNSCENTED [Suspect]
     Active Substance: MINOXIDIL
     Indication: ALOPECIA
     Dosage: LESS THAN A HALF CAP, FOR 3 DAYS
     Route: 061
  3. VITAMIN D [Concomitant]
     Active Substance: CHOLECALCIFEROL
     Indication: NUTRITIONAL SUPPLEMENTATION
     Dosage: 3 YEARS
     Route: 065

REACTIONS (2)
  - Pruritus [Recovering/Resolving]
  - Underdose [Recovering/Resolving]
